FAERS Safety Report 5475061-1 (Version None)
Quarter: 2007Q4

REPORT INFORMATION
  Report Type: 
  Country: None (occurrence: None)
  Receive Date: 20071002
  Receipt Date: 20070920
  Transmission Date: 20080405
  Serious: Yes (Other)
  Sender: FDA-Public Use
  Company Number: CZ-PFIZER INC-2007079366

PATIENT
  Age: 36 Year
  Sex: Female

DRUGS (5)
  1. LYRICA [Suspect]
     Indication: EPILEPSY
     Dosage: DAILY DOSE:225MG-TEXT:75MG AND 150MG UNIT DOSES
     Route: 048
  2. CARBAMAZEPINE [Concomitant]
  3. LEVETIRACETAM [Concomitant]
  4. LAMOTRIGINE [Concomitant]
  5. THYROID TAB [Concomitant]

REACTIONS (2)
  - SIMPLE PARTIAL SEIZURES [None]
  - WEIGHT INCREASED [None]
